FAERS Safety Report 11505118 (Version 1)
Quarter: 2015Q3

REPORT INFORMATION
  Report Type: Spontaneous
  Country: US (occurrence: US)
  Receive Date: 20150915
  Receipt Date: 20150915
  Transmission Date: 20151125
  Serious: Yes (Other)
  Sender: FDA-Public Use
  Company Number: US-ROCHE-775350

PATIENT
  Age: 58 Year
  Sex: Male
  Weight: 96.2 kg

DRUGS (2)
  1. PEGASYS [Suspect]
     Active Substance: PEGINTERFERON ALFA-2A
     Indication: HEPATITIS C
     Route: 065
  2. COPEGUS [Suspect]
     Active Substance: RIBAVIRIN
     Indication: HEPATITIS C
     Dosage: DIVIDED DOSES
     Route: 065

REACTIONS (7)
  - Liver disorder [Not Recovered/Not Resolved]
  - Dry skin [Not Recovered/Not Resolved]
  - Eye infection [Unknown]
  - Blindness unilateral [Unknown]
  - Weight decreased [Unknown]
  - Irritability [Not Recovered/Not Resolved]
  - Rash macular [Unknown]

NARRATIVE: CASE EVENT DATE: 20100723
